FAERS Safety Report 6068024-9 (Version None)
Quarter: 2009Q1

REPORT INFORMATION
  Report Type: 
  Country: None (occurrence: None)
  Receive Date: 20090206
  Receipt Date: 20090203
  Transmission Date: 20090719
  Serious: Yes (Hospitalization)
  Sender: FDA-Public Use
  Company Number: IT-BRISTOL-MYERS SQUIBB COMPANY-14391171

PATIENT
  Age: 66 Year
  Sex: Male

DRUGS (3)
  1. PRAVASELECT [Suspect]
     Indication: HYPERCHOLESTEROLAEMIA
     Dosage: INTERRUPED ON 30NOV08.
     Route: 048
     Dates: start: 20020301
  2. CALCIUM CARBONATE [Concomitant]
  3. CHOLECALCIFEROL [Concomitant]

REACTIONS (1)
  - TENDON RUPTURE [None]
